FAERS Safety Report 15345986 (Version 1)
Quarter: 2018Q3

REPORT INFORMATION
  Report Type: Spontaneous
  Country: AU (occurrence: AU)
  Receive Date: 20180904
  Receipt Date: 20180904
  Transmission Date: 20181010
  Serious: Yes (Hospitalization)
  Sender: FDA-Public Use
  Company Number: AU-ROCHE-2080051

PATIENT
  Sex: Male

DRUGS (3)
  1. PULMOZYME [Suspect]
     Active Substance: DORNASE ALFA
     Indication: IDIOPATHIC PULMONARY FIBROSIS
  2. PULMOZYME [Suspect]
     Active Substance: DORNASE ALFA
     Indication: LUNG TRANSPLANT
     Route: 065
  3. NEORECORMON [Suspect]
     Active Substance: ERYTHROPOIETIN
     Indication: PRODUCT USED FOR UNKNOWN INDICATION
     Route: 058

REACTIONS (3)
  - Haemorrhage [Unknown]
  - Off label use [Unknown]
  - Intentional product use issue [Unknown]
